FAERS Safety Report 19490252 (Version 2)
Quarter: 2022Q1

REPORT INFORMATION
  Report Type: Spontaneous
  Country: JP (occurrence: JP)
  Receive Date: 20210705
  Receipt Date: 20220302
  Transmission Date: 20220423
  Serious: Yes (Hospitalization)
  Sender: FDA-Public Use
  Company Number: JP-JNJFOC-20210702647

PATIENT
  Age: 88 Year
  Sex: Female

DRUGS (7)
  1. HALOMONTH [Suspect]
     Active Substance: HALOPERIDOL DECANOATE
     Indication: Product used for unknown indication
     Dosage: DOSE UNKNOWN
     Route: 030
  2. HALOMONTH [Suspect]
     Active Substance: HALOPERIDOL DECANOATE
     Indication: Product used for unknown indication
     Dosage: DOSE UNKNOWN
     Route: 030
  3. LATUDA [Concomitant]
     Active Substance: LURASIDONE HYDROCHLORIDE
     Route: 048
  4. LUNESTA [Concomitant]
     Active Substance: ESZOPICLONE
     Dosage: DOSE UNKNOWN
     Route: 048
  5. DAYVIGO [Concomitant]
     Active Substance: LEMBOREXANT
     Dosage: DOSE UNKNOWN
     Route: 048
  6. RIVASTIGMINE [Concomitant]
     Active Substance: RIVASTIGMINE
     Dosage: DOSE UNKNOWN
     Route: 065
  7. MEMANTINE HYDROCHLORIDE [Concomitant]
     Active Substance: MEMANTINE HYDROCHLORIDE
     Dosage: DOSE UNKNOWN
     Route: 048

REACTIONS (2)
  - Fall [Unknown]
  - Femoral neck fracture [Recovered/Resolved]

NARRATIVE: CASE EVENT DATE: 20210508
